FAERS Safety Report 8667877 (Version 7)
Quarter: 2012Q4

REPORT INFORMATION
  Report Type: 
  Country: GB (occurrence: GB)
  Receive Date: 20120717
  Receipt Date: 20120917
  Transmission Date: 20130627
  Serious: Yes (Other)
  Sender: FDA-Public Use
  Company Number: GB-MYLANLABS-2012S1016589

PATIENT
  Sex: Male

DRUGS (10)
  1. FLUCLOXACILLIN [Suspect]
     Indication: CELLULITIS
     Dosage: 28 Capsules, once capsule 4 times a day for 7 days
     Dates: start: 20120704
  2. FLUCLOXACILLIN [Suspect]
     Indication: FUNGAL INFECTION
     Dosage: 28 Capsules, once capsule 4 times a day for 7 days
     Dates: start: 20120704
  3. FLUCLOXACILLIN [Suspect]
     Indication: CELLULITIS
  4. FLUCLOXACILLIN [Suspect]
     Indication: FUNGAL INFECTION
  5. ITRACONAZOLE [Suspect]
     Indication: FUNGAL INFECTION
  6. HYDROCORTISONE\MICONAZOLE [Suspect]
     Indication: CELLULITIS
     Route: 065
  7. DAKTACORT [Suspect]
     Indication: FUNGAL INFECTION
     Route: 065
  8. DAKTARIN [Suspect]
     Indication: CELLULITIS
     Route: 061
  9. DAKTARIN [Suspect]
     Indication: FUNGAL INFECTION
     Route: 061
  10. CORTISONE [Concomitant]
     Indication: BLISTER

REACTIONS (3)
  - Cellulitis [Recovered/Resolved]
  - Fungal infection [Recovered/Resolved]
  - Blister [Recovered/Resolved]
